FAERS Safety Report 5542792-4 (Version None)
Quarter: 2007Q4

REPORT INFORMATION
  Report Type: 
  Country: None (occurrence: None)
  Receive Date: 20071210
  Receipt Date: 20071128
  Transmission Date: 20080405
  Serious: Yes (Hospitalization, Other)
  Sender: FDA-Public Use
  Company Number: US-ELI_LILLY_AND_COMPANY-US200711006520

PATIENT
  Sex: Female

DRUGS (19)
  1. FORTEO [Suspect]
     Dates: start: 20071126, end: 20071126
  2. ZYPREXA [Suspect]
     Dosage: 2.5 MG, UNK
  3. CALCIUM [Concomitant]
  4. CORTEF [Concomitant]
  5. CYTOMEL [Concomitant]
  6. DEPAKOTE [Concomitant]
  7. FLORINEF [Concomitant]
  8. MULTI-VITAMIN [Concomitant]
  9. POTASSIUM CHLORIDE [Concomitant]
  10. PROTONIX [Concomitant]
  11. SPIRONOLACTONE [Concomitant]
  12. VITAMIN D [Concomitant]
  13. DOMEBORO OTIC [Concomitant]
  14. OLOPATADINE [Concomitant]
  15. GLYCOLAX [Concomitant]
     Indication: CONSTIPATION
  16. ATIVAN [Concomitant]
  17. SOLU-MEDROL [Concomitant]
  18. TRAZODONE HCL [Concomitant]
  19. HYDROCODONE BITARTRATE [Concomitant]
     Indication: PAIN

REACTIONS (5)
  - BLOOD PRESSURE FLUCTUATION [None]
  - BODY TEMPERATURE INCREASED [None]
  - DIARRHOEA [None]
  - DYSPHAGIA [None]
  - TARDIVE DYSKINESIA [None]
